FAERS Safety Report 7805794-0 (Version None)
Quarter: 2011Q4

REPORT INFORMATION
  Report Type: 
  Country: None (occurrence: None)
  Receive Date: 20111011
  Receipt Date: 20110930
  Transmission Date: 20120403
  Serious: No
  Sender: FDA-Public Use
  Company Number: US-BIOGENIDEC-2011BI037883

PATIENT
  Age: 45 Year
  Sex: Female

DRUGS (1)
  1. TYSABRI [Suspect]
     Indication: MULTIPLE SCLEROSIS
     Route: 042
     Dates: start: 20110622, end: 20110915

REACTIONS (6)
  - DELUSION [None]
  - ANXIETY [None]
  - DYSPNOEA [None]
  - THINKING ABNORMAL [None]
  - ASTHENIA [None]
  - NAUSEA [None]
